FAERS Safety Report 5636720-0 (Version None)
Quarter: 2008Q1

REPORT INFORMATION
  Report Type: 
  Country: None (occurrence: None)
  Receive Date: 20080219
  Receipt Date: 20080205
  Transmission Date: 20080703
  Serious: Yes (Other)
  Sender: FDA-Public Use
  Company Number: 080207-0000109

PATIENT
  Age: 25 Year
  Sex: Male

DRUGS (5)
  1. ELSPAR [Suspect]
     Indication: T-CELL TYPE ACUTE LEUKAEMIA
  2. CORTICOSTEROID (NO PREF. NAME) [Suspect]
     Indication: T-CELL TYPE ACUTE LEUKAEMIA
  3. DOXORUBICIN HCL [Suspect]
     Indication: T-CELL TYPE ACUTE LEUKAEMIA
  4. CYCLOPHOSPHAMIDE [Suspect]
     Indication: T-CELL TYPE ACUTE LEUKAEMIA
  5. VINCRISTINE [Suspect]
     Indication: T-CELL TYPE ACUTE LEUKAEMIA

REACTIONS (1)
  - INFECTION [None]
